FAERS Safety Report 25424066 (Version 1)
Quarter: 2025Q2

REPORT INFORMATION
  Report Type: Spontaneous
  Country: US (occurrence: None)
  Receive Date: 20250610
  Receipt Date: 20250610
  Transmission Date: 20250717
  Serious: No
  Sender: FDA-CTU
  Company Number: None

PATIENT
  Age: 62 Year
  Sex: Female

DRUGS (1)
  1. PIRFENIDONE [Suspect]
     Active Substance: PIRFENIDONE
     Indication: Interstitial lung disease
     Dosage: 267 MG 3 TIMES A DAY ORAL ?
     Route: 048
     Dates: start: 20250609, end: 20250610

REACTIONS (3)
  - Hypersensitivity [None]
  - Dysphagia [None]
  - Therapy interrupted [None]

NARRATIVE: CASE EVENT DATE: 20250610
